FAERS Safety Report 18312144 (Version 1)
Quarter: 2020Q3

REPORT INFORMATION
  Report Type: Spontaneous
  Country: US (occurrence: US)
  Receive Date: 20200925
  Receipt Date: 20200925
  Transmission Date: 20201103
  Serious: No
  Sender: FDA-Public Use
  Company Number: None

PATIENT
  Age: 35 Year
  Sex: Female

DRUGS (14)
  1. KETOROLAC [Concomitant]
     Active Substance: KETOROLAC TROMETHAMINE
  2. MYLANTA [Concomitant]
     Active Substance: ALUMINUM HYDROXIDE\DIMETHICONE\MAGNESIUM HYDROXIDE
  3. CEFTRIAXONE. [Concomitant]
     Active Substance: CEFTRIAXONE
  4. PIPERACILLIN/TAZOBACTAM [Concomitant]
     Active Substance: PIPERACILLIN SODIUM\TAZOBACTAM SODIUM
  5. ONDANSETRON [Concomitant]
     Active Substance: ONDANSETRON
  6. AZITHROMYCIN ANHYDROUS. [Concomitant]
     Active Substance: AZITHROMYCIN ANHYDROUS
  7. VANCOMYCIN [Concomitant]
     Active Substance: VANCOMYCIN
  8. REMDESIVIR. [Suspect]
     Active Substance: REMDESIVIR
     Indication: COVID-19
  9. FAMOTIDINE. [Concomitant]
     Active Substance: FAMOTIDINE
  10. MORPHINE [Concomitant]
     Active Substance: MORPHINE
  11. SALINE [Concomitant]
     Active Substance: SODIUM CHLORIDE
  12. APAP [Concomitant]
     Active Substance: ACETAMINOPHEN
  13. DEXAMETHASONE. [Concomitant]
     Active Substance: DEXAMETHASONE
  14. ENOXAPARIN [Concomitant]
     Active Substance: ENOXAPARIN

REACTIONS (2)
  - Electrocardiogram QT prolonged [None]
  - Sinus bradycardia [None]
